FAERS Safety Report 6250805-X (Version None)
Quarter: 2009Q2

REPORT INFORMATION
  Report Type: 
  Country: None (occurrence: None)
  Receive Date: 20090630
  Receipt Date: 20081111
  Transmission Date: 20091009
  Serious: No
  Sender: FDA-Public Use
  Company Number: US-ABBOTT-08P-163-0486831-00

PATIENT
  Sex: Female

DRUGS (2)
  1. ZEMPLAR [Suspect]
     Indication: HYPERPARATHYROIDISM
     Dates: start: 20080602, end: 20081103
  2. ZEMPLAR [Suspect]
     Dates: start: 20081104

REACTIONS (2)
  - ARTHRALGIA [None]
  - BONE PAIN [None]
